FAERS Safety Report 5262013-X (Version None)
Quarter: 2007Q1

REPORT INFORMATION
  Report Type: 
  Country: None (occurrence: None)
  Receive Date: 20061208
  Receipt Date: 20060807
  Transmission Date: 20070707
  Serious: Yes (Other)
  Sender: FDA-Public Use
  Company Number: USA-2006-0024840

PATIENT
  Age: 19 Year
  Sex: Female
  Weight: 46.3 kg

DRUGS (3)
  1. OXYCONTIN [Suspect]
     Indication: DRUG ABUSER
     Dosage: INHALATION
     Route: 055
     Dates: start: 20051001, end: 20060809
  2. OXYCODONE HCL [Suspect]
     Indication: DRUG ABUSER
     Dosage: INHALATION
     Route: 055
  3. ROXICODONE [Suspect]
     Indication: DRUG ABUSER

REACTIONS (14)
  - ANOREXIA [None]
  - DRUG ABUSER [None]
  - DRUG DEPENDENCE [None]
  - DRUG WITHDRAWAL SYNDROME [None]
  - FORMICATION [None]
  - INSOMNIA [None]
  - INTENTIONAL DRUG MISUSE [None]
  - IRRITABILITY [None]
  - MENTAL IMPAIRMENT [None]
  - OLIGOMENORRHOEA [None]
  - PRURITUS [None]
  - SOMNOLENCE [None]
  - VOMITING [None]
  - WEIGHT DECREASED [None]
